FAERS Safety Report 19075451 (Version 21)
Quarter: 2023Q4

REPORT INFORMATION
  Report Type: Spontaneous
  Country: PL (occurrence: PL)
  Receive Date: 20210331
  Receipt Date: 20231210
  Transmission Date: 20240109
  Serious: Yes (Hospitalization, Other)
  Sender: FDA-Public Use
  Company Number: PL-002147023-NVSC2021PL058600

PATIENT
  Age: 46 Year
  Sex: Male

DRUGS (17)
  1. ATORVASTATIN [Suspect]
     Active Substance: ATORVASTATIN
     Indication: Cardiac failure chronic
     Dosage: 1 DOSAGE FORM, ONCE A DAY
     Route: 065
  2. ATORVASTATIN [Suspect]
     Active Substance: ATORVASTATIN
     Indication: Cardiac failure chronic
     Dosage: 1 DOSAGE FORM, ONCE A DAY
     Route: 048
  3. CARVEDILOL [Suspect]
     Active Substance: CARVEDILOL
     Indication: Cardiac failure chronic
     Dosage: 2 DOSAGE FORM, ONCE A DAY
     Route: 065
  4. CARVEDILOL [Suspect]
     Active Substance: CARVEDILOL
     Dosage: 1 DOSAGE FORM, TWO TIMES A DAY
     Route: 065
  5. IVABRADINE [Suspect]
     Active Substance: IVABRADINE
     Indication: Cardiac failure chronic
     Dosage: 1 DOSAGE FORM, ONCE A DAY (0.5 DF, BID)
     Route: 065
  6. IVABRADINE [Suspect]
     Active Substance: IVABRADINE
     Dosage: 10 MILLIGRAM, ONCE A DAY
     Route: 065
  7. IVABRADINE [Suspect]
     Active Substance: IVABRADINE
     Dosage: 5 DOSAGE FORM, TWO TIMES A DAY
     Route: 065
     Dates: start: 20190522
  8. RAMIPRIL [Suspect]
     Active Substance: RAMIPRIL
     Indication: Cardiac failure chronic
     Dosage: 1 DOSAGE FORM, ONCE A DAY
     Route: 048
  9. ROSUVASTATIN [Suspect]
     Active Substance: ROSUVASTATIN
     Indication: Cardiac failure chronic
     Dosage: 1 DOSAGE FORM, ONCE A DAY
     Route: 048
  10. ASPIRIN [Suspect]
     Active Substance: ASPIRIN
     Indication: Cardiac failure chronic
     Dosage: 1 DOSAGE FORM, ONCE A DAY
     Route: 065
  11. COREG [Suspect]
     Active Substance: CARVEDILOL
     Indication: Cardiac failure chronic
     Dosage: 1 DOSAGE FORM, TWO TIMES A DAY
     Route: 065
  12. COREG [Suspect]
     Active Substance: CARVEDILOL
     Dosage: 2 DOSAGE FORM, ONCE A DAY
     Route: 065
  13. ENTRESTO [Suspect]
     Active Substance: SACUBITRIL\VALSARTAN
     Indication: Cardiac failure chronic
     Dosage: 2 DOSAGE FORM, (49MG/51MG)
     Route: 065
  14. ENTRESTO [Suspect]
     Active Substance: SACUBITRIL\VALSARTAN
     Dosage: 2 DOSAGE FORM
     Route: 065
     Dates: start: 20191128
  15. ENTRESTO [Suspect]
     Active Substance: SACUBITRIL\VALSARTAN
     Dosage: 1 DOSAGE FORM, TWO TIMES A DAY (2 DF (OF 49/51MG)/2 DF (OF 24/26MG) )
     Route: 065
     Dates: start: 20191128
  16. EPLERENONE [Suspect]
     Active Substance: EPLERENONE
     Indication: Cardiac failure chronic
     Dosage: 1 DOSAGE FORM, ONCE A DAY  (AT NOON)
     Route: 065
  17. TORSEMIDE [Suspect]
     Active Substance: TORSEMIDE
     Indication: Cardiac failure chronic
     Dosage: 20 MILLIGRAM, ONCE A DAY
     Route: 065

REACTIONS (9)
  - Cardiac failure [Recovered/Resolved]
  - Bradycardia [Unknown]
  - Hypotension [Unknown]
  - Feeling abnormal [Unknown]
  - Electrocardiogram abnormal [Unknown]
  - Computerised tomogram heart abnormal [Unknown]
  - Overdose [Unknown]
  - Intentional product misuse [Unknown]
  - Medication error [Unknown]

NARRATIVE: CASE EVENT DATE: 20190522
